FAERS Safety Report 13705083 (Version 1)
Quarter: 2017Q2

REPORT INFORMATION
  Report Type: Spontaneous
  Country: US (occurrence: US)
  Receive Date: 20170630
  Receipt Date: 20170630
  Transmission Date: 20170830
  Serious: Yes (Other)
  Sender: FDA-Public Use
  Company Number: US-CONCORDIA PHARMACEUTICALS INC.-GSH201706-003836

PATIENT
  Sex: Female

DRUGS (2)
  1. PLAQUENIL [Suspect]
     Active Substance: HYDROXYCHLOROQUINE SULFATE
     Indication: ARTHRITIS
  2. FABRAZYME [Suspect]
     Active Substance: AGALSIDASE BETA
     Indication: ONCOLOGIC COMPLICATION
     Dosage: 130
     Route: 042
     Dates: start: 20170510

REACTIONS (1)
  - Diabetes mellitus [Not Recovered/Not Resolved]
